FAERS Safety Report 8458993 (Version 3)
Quarter: 2015Q4

REPORT INFORMATION
  Report Type: Spontaneous
  Country: US (occurrence: US)
  Receive Date: 20120314
  Receipt Date: 20151221
  Transmission Date: 20160305
  Serious: Yes (Hospitalization)
  Sender: FDA-Public Use
  Company Number: US-BAYER-2012-021888

PATIENT
  Age: 40 Year
  Sex: Female
  Weight: 84 kg

DRUGS (11)
  1. CYMBALTA [Concomitant]
     Active Substance: DULOXETINE HYDROCHLORIDE
     Indication: DEPRESSION
     Dosage: 1 PILL DAILY
     Route: 048
     Dates: start: 2007
  2. PLAVIX [Concomitant]
     Active Substance: CLOPIDOGREL BISULFATE
  3. STATIN [Concomitant]
     Active Substance: UNSPECIFIED INGREDIENT
  4. LOPRESSOR [Concomitant]
     Active Substance: METOPROLOL TARTRATE
  5. LIPITOR [Concomitant]
     Active Substance: ATORVASTATIN CALCIUM
  6. EXCEDRIN [ACETYLSALICYLIC ACID,CAFFEINE,PARACETAMOL,SALICYLAMIDE] [Concomitant]
     Active Substance: ACETAMINOPHEN\ASPIRIN\CAFFEINE
     Indication: HEADACHE
     Dosage: 2 PILLS AS NEEDED
     Route: 048
  7. RAMIPRIL. [Concomitant]
     Active Substance: RAMIPRIL
  8. YASMIN [Suspect]
     Active Substance: DROSPIRENONE\ETHINYL ESTRADIOL
     Indication: MENORRHAGIA
  9. YASMIN [Suspect]
     Active Substance: DROSPIRENONE\ETHINYL ESTRADIOL
     Indication: CONTRACEPTION
     Dosage: UNK
     Dates: start: 20050519, end: 20080702
  10. OCELLA [Suspect]
     Active Substance: DROSPIRENONE\ETHINYL ESTRADIOL
     Indication: CONTRACEPTION
     Dosage: UNK
     Dates: start: 20080708, end: 20090212
  11. OCELLA [Suspect]
     Active Substance: DROSPIRENONE\ETHINYL ESTRADIOL
     Indication: MENORRHAGIA

REACTIONS (11)
  - Myocardial infarction [None]
  - Injury [None]
  - Dyspnoea [None]
  - Fibromyalgia [None]
  - Amnesia [None]
  - Post-traumatic stress disorder [None]
  - Electrocardiogram ST segment elevation [None]
  - Depression [None]
  - Chest discomfort [None]
  - Anxiety [None]
  - Pain [None]

NARRATIVE: CASE EVENT DATE: 2009
